FAERS Safety Report 5237483-3 (Version None)
Quarter: 2007Q1

REPORT INFORMATION
  Report Type: 
  Country: None (occurrence: None)
  Receive Date: 20070213
  Receipt Date: 20070131
  Transmission Date: 20070707
  Serious: Yes (Other)
  Sender: FDA-Public Use
  Company Number: US-ELI_LILLY_AND_COMPANY-US200701000976

PATIENT
  Age: 61 Year
  Sex: Male

DRUGS (2)
  1. HUMULIN N [Suspect]
     Dosage: UNK, UNKNOWN
     Dates: start: 19960101
  2. HUMULIN N [Suspect]
     Dosage: UNK, UNKNOWN

REACTIONS (8)
  - ACCIDENTAL NEEDLE STICK [None]
  - BLINDNESS [None]
  - CATARACT [None]
  - DIABETIC RETINOPATHY [None]
  - GLAUCOMA [None]
  - PAIN [None]
  - VISION BLURRED [None]
  - VISUAL ACUITY REDUCED [None]
